FAERS Safety Report 12934963 (Version 2)
Quarter: 2016Q4

REPORT INFORMATION
  Report Type: Report from Study
  Country: IE (occurrence: IE)
  Receive Date: 20161113
  Receipt Date: 20161226
  Transmission Date: 20170207
  Serious: Yes (Other)
  Sender: FDA-Public Use
  Company Number: PHFR2016IE008913

PATIENT
  Age: 59 Year
  Sex: Male

DRUGS (7)
  1. ROSUVASTATIN. [Concomitant]
     Active Substance: ROSUVASTATIN
     Indication: BLOOD CHOLESTEROL INCREASED
     Dosage: 20 MG, QD
     Route: 048
     Dates: start: 20160419
  2. BUPLEX [Concomitant]
     Indication: ANALGESIC THERAPY
     Dosage: 600 MG, TID
     Route: 048
     Dates: start: 20120719
  3. GERIVENT [Concomitant]
     Indication: RESPIRATORY DISORDER
     Dosage: 100 UG, (02 PUFF) PRN
     Route: 055
  4. ULTIBRO BREEZHALER [Suspect]
     Active Substance: GLYCOPYRRONIUM\INDACATEROL
     Indication: CHRONIC OBSTRUCTIVE PULMONARY DISEASE
     Dosage: UNK
     Route: 055
     Dates: start: 20150520
  5. SINGULAIR [Concomitant]
     Active Substance: MONTELUKAST SODIUM
     Indication: RESPIRATORY DISORDER
     Dosage: 10 MG, NOCTE (AT NIGHT)
     Route: 048
     Dates: start: 20090827
  6. COVERDINE [Concomitant]
     Indication: HYPERTENSION
     Dosage: UNK UNK, QD
     Route: 048
     Dates: start: 20160810
  7. FLIXOTIDE [Concomitant]
     Active Substance: FLUTICASONE PROPIONATE
     Indication: RESPIRATORY DISORDER
     Dosage: 500 UG, BID
     Route: 055
     Dates: start: 20150721

REACTIONS (11)
  - Cough [Recovered/Resolved]
  - Neck pain [Unknown]
  - Wheezing [Recovered/Resolved]
  - Chest discomfort [Recovered/Resolved]
  - Sinus tachycardia [Recovered/Resolved]
  - Oropharyngeal pain [Recovered/Resolved]
  - Pharyngitis [Recovered/Resolved]
  - Non-cardiac chest pain [Recovered/Resolved]
  - Sinusitis [Recovered/Resolved]
  - Heart rate increased [Recovered/Resolved]
  - Asthenia [Recovered/Resolved]

NARRATIVE: CASE EVENT DATE: 20151111
